FAERS Safety Report 16029056 (Version 1)
Quarter: 2019Q1

REPORT INFORMATION
  Report Type: Report from Study
  Country: BE (occurrence: BE)
  Receive Date: 20190304
  Receipt Date: 20190304
  Transmission Date: 20190418
  Serious: Yes (Death, Hospitalization)
  Sender: FDA-Public Use
  Company Number: PHHY2019BE047788

PATIENT
  Age: 58 Year
  Sex: Male

DRUGS (1)
  1. SANDOSTATIN LAR DEPOT [Suspect]
     Active Substance: OCTREOTIDE ACETATE
     Indication: NEUROENDOCRINE TUMOUR
     Dosage: 30 MG, QMO (1 PER 28 DAYS)
     Route: 058

REACTIONS (2)
  - Incorrect route of product administration [Unknown]
  - Death [Fatal]

NARRATIVE: CASE EVENT DATE: 20190227
